FAERS Safety Report 12596560 (Version 1)
Quarter: 2016Q3

REPORT INFORMATION
  Report Type: Report from Study
  Country: KR (occurrence: KR)
  Receive Date: 20160726
  Receipt Date: 20160726
  Transmission Date: 20161109
  Serious: Yes (Hospitalization)
  Sender: FDA-Public Use
  Company Number: KR-B.I. PHARMACEUTICALS,INC./RIDGEFIELD-2016-BI-47392RK

PATIENT
  Age: 58 Year
  Sex: Male
  Weight: 79.1 kg

DRUGS (7)
  1. LOPAMIDE [Concomitant]
     Dosage: 12 MG
     Route: 065
     Dates: start: 20160203
  2. GILOTRIF [Suspect]
     Active Substance: AFATINIB
     Dosage: 20 MG
     Route: 048
     Dates: start: 20160502
  3. GILOTRIF [Suspect]
     Active Substance: AFATINIB
     Indication: NON-SMALL CELL LUNG CANCER
     Dosage: 40 MG
     Route: 048
     Dates: start: 20151207, end: 20160219
  4. ASIMA [Concomitant]
     Indication: CHRONIC OBSTRUCTIVE PULMONARY DISEASE
     Dosage: 800 MG
     Route: 065
     Dates: start: 20160203
  5. LOPAMIDE [Concomitant]
     Indication: PROPHYLAXIS AGAINST DIARRHOEA
     Dosage: 18 MG
     Route: 065
     Dates: start: 20151207, end: 20151220
  6. GILOTRIF [Suspect]
     Active Substance: AFATINIB
     Dosage: 30 MG
     Route: 048
     Dates: start: 20160223, end: 20160501
  7. AVAMYS [Concomitant]
     Active Substance: FLUTICASONE FUROATE
     Indication: CHRONIC OBSTRUCTIVE PULMONARY DISEASE
     Dosage: 1 ANZ
     Route: 065
     Dates: start: 20160203

REACTIONS (1)
  - Azotaemia [Recovered/Resolved]

NARRATIVE: CASE EVENT DATE: 20160219
